FAERS Safety Report 16469622 (Version 1)
Quarter: 2019Q2

REPORT INFORMATION
  Report Type: Spontaneous
  Country: US (occurrence: US)
  Receive Date: 20190624
  Receipt Date: 20190624
  Transmission Date: 20190711
  Serious: Yes (Life-Threatening)
  Sender: FDA-Public Use
  Company Number: PHHY2019US144168

PATIENT
  Age: 9 Year
  Sex: Female

DRUGS (3)
  1. FLUCONAZOLE. [Interacting]
     Active Substance: FLUCONAZOLE
     Indication: PRODUCT USED FOR UNKNOWN INDICATION
     Route: 065
  2. POSACONAZOLE [Interacting]
     Active Substance: POSACONAZOLE
     Indication: PRODUCT USED FOR UNKNOWN INDICATION
     Dosage: 200 MG, QD
     Route: 065
  3. FLUTICASONE. [Suspect]
     Active Substance: FLUTICASONE
     Indication: PRODUCT USED FOR UNKNOWN INDICATION
     Route: 055

REACTIONS (8)
  - Fatigue [Unknown]
  - Swelling face [Unknown]
  - Adrenal insufficiency [Recovered/Resolved]
  - Cushingoid [Recovered/Resolved]
  - Alopecia [Unknown]
  - Pathological fracture [Unknown]
  - Growth failure [Recovering/Resolving]
  - Drug interaction [Unknown]
